FAERS Safety Report 7756128 (Version 6)
Quarter: 2013Q1

REPORT INFORMATION
  Report Type: Spontaneous
  Country: US (occurrence: US)
  Receive Date: 20110111
  Receipt Date: 20130329
  Transmission Date: 20140127
  Serious: Yes (Hospitalization, Disabling, Other)
  Sender: FDA-Public Use
  Company Number: US-PURDUE-USA-2011-0061696

PATIENT
  Age: 29 None
  Sex: Male

DRUGS (1)
  1. OXYCONTIN TABLETS [Suspect]
     Indication: PAIN
     Dosage: UNK
     Route: 048
     Dates: start: 200408

REACTIONS (16)
  - Overdose [Unknown]
  - Drug dependence [Not Recovered/Not Resolved]
  - Drug abuse [Unknown]
  - Suicide attempt [Unknown]
  - Intentional self-injury [Unknown]
  - Imprisonment [Unknown]
  - Cyanosis [Unknown]
  - Drug withdrawal syndrome [Unknown]
  - Intentional drug misuse [Unknown]
  - Gastroenteritis viral [Recovered/Resolved]
  - Theft [Unknown]
  - Emotional disorder [Unknown]
  - Economic problem [Unknown]
  - Pain [Unknown]
  - Cold sweat [Unknown]
  - Malaise [Unknown]
